FAERS Safety Report 13690262 (Version 2)
Quarter: 2017Q2

REPORT INFORMATION
  Report Type: Spontaneous
  Country: CZ (occurrence: CZ)
  Receive Date: 20170626
  Receipt Date: 20170630
  Transmission Date: 20170830
  Serious: Yes (Other)
  Sender: FDA-Public Use
  Company Number: CZ-SA-2017SA108939

PATIENT
  Sex: Female

DRUGS (2)
  1. ALEMTUZUMAB [Suspect]
     Active Substance: ALEMTUZUMAB
     Indication: RELAPSING-REMITTING MULTIPLE SCLEROSIS
     Route: 065
     Dates: start: 201511, end: 201511
  2. METHYLPREDNISOLONE. [Concomitant]
     Active Substance: METHYLPREDNISOLONE
     Indication: MULTIPLE SCLEROSIS RELAPSE
     Route: 065

REACTIONS (6)
  - Paraparesis [Recovering/Resolving]
  - Hyporeflexia [Recovering/Resolving]
  - Muscular weakness [Recovering/Resolving]
  - Acute motor axonal neuropathy [Recovering/Resolving]
  - Urinary tract infection pseudomonal [Unknown]
  - Hypotonia [Recovering/Resolving]

NARRATIVE: CASE EVENT DATE: 201512
